FAERS Safety Report 20704849 (Version 2)
Quarter: 2022Q3

REPORT INFORMATION
  Report Type: Spontaneous
  Country: US (occurrence: US)
  Receive Date: 20220413
  Receipt Date: 20220709
  Transmission Date: 20221027
  Serious: Yes (Other)
  Sender: FDA-Public Use
  Company Number: US-BRISTOL-MYERS SQUIBB COMPANY-2022-016305

PATIENT
  Age: 51 Year
  Sex: Female

DRUGS (2)
  1. REVLIMID [Suspect]
     Active Substance: LENALIDOMIDE
     Indication: Follicular lymphoma
     Route: 048
  2. REVLIMID [Suspect]
     Active Substance: LENALIDOMIDE
     Indication: Plasma cell myeloma
     Route: 048
     Dates: start: 20211217

REACTIONS (12)
  - Diarrhoea [Recovering/Resolving]
  - Constipation [Unknown]
  - Fatigue [Unknown]
  - Leukoplakia oral [Unknown]
  - Pain [Unknown]
  - Nausea [Unknown]
  - Stomatitis [Unknown]
  - Oral mucosal erythema [Unknown]
  - Mouth ulceration [Unknown]
  - Gastrointestinal disorder [Unknown]
  - Discomfort [Unknown]
  - Dyschezia [Unknown]
